FAERS Safety Report 16915464 (Version 7)
Quarter: 2020Q2

REPORT INFORMATION
  Report Type: Report from Study
  Country: CA (occurrence: CA)
  Receive Date: 20191014
  Receipt Date: 20200625
  Transmission Date: 20200713
  Serious: Yes (Hospitalization, Other)
  Sender: FDA-Public Use
  Company Number: CA-BRISTOL-MYERS SQUIBB COMPANY-BMS-2019-059085

PATIENT
  Age: 73 Year
  Sex: Female

DRUGS (2)
  1. XELJANZ [Concomitant]
     Active Substance: TOFACITINIB CITRATE
     Indication: PRODUCT USED FOR UNKNOWN INDICATION
     Dosage: UNK
     Route: 065
  2. ABATACEPT [Suspect]
     Active Substance: ABATACEPT
     Indication: RHEUMATOID ARTHRITIS
     Dosage: 500 MILLIGRAM, Q4WK
     Route: 042
     Dates: start: 20190529

REACTIONS (7)
  - Product dose omission [Unknown]
  - Blood pressure increased [Unknown]
  - Cataract [Unknown]
  - Malaise [Unknown]
  - Dehydration [Recovering/Resolving]
  - Hospitalisation [Unknown]
  - Hypertension [Not Recovered/Not Resolved]

NARRATIVE: CASE EVENT DATE: 20190613
